FAERS Safety Report 18077717 (Version 1)
Quarter: 2020Q3

REPORT INFORMATION
  Report Type: Report from Study
  Country: US (occurrence: US)
  Receive Date: 20200727
  Receipt Date: 20200727
  Transmission Date: 20201103
  Serious: No
  Sender: FDA-Public Use
  Company Number: NVSC2020US203585

PATIENT
  Sex: Female
  Weight: 70.76 kg

DRUGS (1)
  1. GLATOPA [Suspect]
     Active Substance: GLATIRAMER ACETATE
     Indication: MULTIPLE SCLEROSIS
     Dosage: 40 MG, Q3W
     Route: 058

REACTIONS (6)
  - Palpitations [Unknown]
  - Swelling [Unknown]
  - Sinus rhythm [Unknown]
  - Panic attack [Unknown]
  - Contusion [Unknown]
  - Injection site pain [Unknown]
